FAERS Safety Report 11069318 (Version 1)
Quarter: 2015Q2

REPORT INFORMATION
  Report Type: Spontaneous
  Country: FR (occurrence: FR)
  Receive Date: 20150427
  Receipt Date: 20150427
  Transmission Date: 20150821
  Serious: Yes (Death)
  Sender: FDA-Public Use
  Company Number: FR-SA-2015SA052278

PATIENT
  Age: 88 Year
  Sex: Female

DRUGS (9)
  1. GALVUS [Concomitant]
     Active Substance: VILDAGLIPTIN
     Dosage: 50MG
  2. TEMESTA [Concomitant]
     Active Substance: LORAZEPAM
     Dosage: 1MG SCORED TABLET
  3. RISPERDAL [Concomitant]
     Active Substance: RISPERIDONE
  4. DETENSIEL [Concomitant]
     Active Substance: BISOPROLOL FUMARATE
  5. PRADAXA [Suspect]
     Active Substance: DABIGATRAN ETEXILATE MESYLATE
     Indication: ATRIAL FIBRILLATION
     Dosage: 110 MG, 2 DAY
     Route: 048
  6. IODINE PRODUCTS [Suspect]
     Active Substance: IODINE
     Indication: COMPUTERISED TOMOGRAM ABDOMEN
     Route: 042
     Dates: start: 20150331
  7. TAHOR [Concomitant]
     Active Substance: ATORVASTATIN CALCIUM
     Dosage: 40MG
  8. LANTUS [Concomitant]
     Active Substance: INSULIN GLARGINE
  9. LASILIX [Suspect]
     Active Substance: FUROSEMIDE
     Indication: CARDIAC FAILURE
     Route: 048

REACTIONS (2)
  - Rectal haemorrhage [Fatal]
  - Haematemesis [Fatal]

NARRATIVE: CASE EVENT DATE: 20150401
